FAERS Safety Report 6445048-0 (Version None)
Quarter: 2009Q4

REPORT INFORMATION
  Report Type: 
  Country: None (occurrence: None)
  Receive Date: 20091118
  Receipt Date: 20070531
  Transmission Date: 20100525
  Serious: Yes (Hospitalization)
  Sender: FDA-Public Use
  Company Number: FR-PFIZER INC-2009265832

PATIENT
  Age: 69 Year
  Sex: Male

DRUGS (7)
  1. IRINOTECAN HCL [Suspect]
     Indication: GASTRIC CANCER
     Dosage: UNK
  2. FLUOROURACIL [Suspect]
     Indication: GASTRIC CANCER
     Dosage: UNK
  3. FOLINIC ACID [Suspect]
     Indication: GASTRIC CANCER
     Dosage: UNK
  4. KARDEGIC [Concomitant]
     Indication: CARDIAC FAILURE
     Dosage: 75 MG, UNK
     Route: 048
  5. ISOPTIN [Concomitant]
     Indication: CARDIAC FAILURE
     Dosage: UNK
     Route: 048
  6. LASILIX [Concomitant]
     Indication: CARDIAC FAILURE
     Dosage: UNK
     Route: 048
  7. ZOCOR [Concomitant]
     Indication: CARDIAC FAILURE
     Dosage: UNK
     Route: 048

REACTIONS (1)
  - PYELONEPHRITIS [None]
